FAERS Safety Report 9319617 (Version 13)
Quarter: 2015Q4

REPORT INFORMATION
  Report Type: Spontaneous
  Country: US (occurrence: US)
  Receive Date: 20130530
  Receipt Date: 20151111
  Transmission Date: 20160305
  Serious: Yes (Death, Hospitalization, Other)
  Sender: FDA-Public Use
  Company Number: US-GLAXOSMITHKLINE-A1013390A

PATIENT
  Age: 62 Year
  Sex: Female
  Weight: 82 kg

DRUGS (11)
  1. FLOLAN [Suspect]
     Active Substance: EPOPROSTENOL SODIUM
     Dosage: UNK
     Dates: start: 20121223
  2. FLOLAN [Suspect]
     Active Substance: EPOPROSTENOL SODIUM
     Dosage: UNK
     Dates: start: 20121223
  3. FLOLAN [Suspect]
     Active Substance: EPOPROSTENOL SODIUM
     Dosage: 78 NG/KG/MIN (CONCENTRATION 105,000 NG/ML, VIAL STRENGTH 1.5 MG), CO
     Route: 042
  4. FLOLAN [Suspect]
     Active Substance: EPOPROSTENOL SODIUM
     Indication: PULMONARY ARTERIAL HYPERTENSION
     Dosage: 51.5 NG/KG/MINCONCENTRATION: 75,000 NG/MLVIAL STRENGTH: 1.5 ML74 NG/KG/MIN 90,000 NG/ML 92[...]
     Route: 042
     Dates: start: 20121221
  5. FLOLAN [Suspect]
     Active Substance: EPOPROSTENOL SODIUM
     Dosage: UNK
     Dates: start: 20121223
  6. FLOLAN [Suspect]
     Active Substance: EPOPROSTENOL SODIUM
     Dosage: UNK
     Dates: start: 20121223
  7. LASIX [Concomitant]
     Active Substance: FUROSEMIDE
  8. FLOLAN [Suspect]
     Active Substance: EPOPROSTENOL SODIUM
     Dosage: 78 NG/KG/MIN CONCENTRATION 105,000 NG/ML PUMP RATE 100 ML/DAY VIAL STRENGTH 1.5 MG
     Route: 042
  9. FLOLAN [Suspect]
     Active Substance: EPOPROSTENOL SODIUM
     Dosage: 78NG/KG/MINUTE
     Route: 042
  10. FLOLAN [Suspect]
     Active Substance: EPOPROSTENOL SODIUM
     Dosage: 78NG/KG/MINUTE,CO
     Route: 042
  11. COUMADIN [Concomitant]
     Active Substance: WARFARIN SODIUM

REACTIONS (16)
  - Chemotherapy [Not Recovered/Not Resolved]
  - Pain in extremity [Recovered/Resolved]
  - Eczema [Recovered/Resolved]
  - Staring [Unknown]
  - Pneumonia [Unknown]
  - Rash [Recovered/Resolved]
  - Nasopharyngitis [Unknown]
  - Viral infection [Unknown]
  - Catheter site extravasation [Unknown]
  - Urinary tract infection [Recovered/Resolved]
  - Dyspnoea [Unknown]
  - Musculoskeletal pain [Recovered/Resolved]
  - Diarrhoea [Recovered/Resolved]
  - Hospice care [Unknown]
  - Multi-organ failure [Fatal]
  - Vomiting [Unknown]

NARRATIVE: CASE EVENT DATE: 20130216
